FAERS Safety Report 15127290 (Version 1)
Quarter: 2018Q3

REPORT INFORMATION
  Report Type: Spontaneous
  Country: GB (occurrence: GB)
  Receive Date: 20180710
  Receipt Date: 20180710
  Transmission Date: 20181010
  Serious: Yes (Other)
  Sender: FDA-Public Use
  Company Number: GB-TEVA-2018-GB-924077

PATIENT
  Sex: Female

DRUGS (1)
  1. ALENDRONATE SODIUM. [Suspect]
     Active Substance: ALENDRONATE SODIUM
     Route: 065
     Dates: start: 20170830

REACTIONS (11)
  - Phlebitis [Not Recovered/Not Resolved]
  - Toothache [Unknown]
  - Pyrexia [Not Recovered/Not Resolved]
  - Constipation [Unknown]
  - Pain in jaw [Unknown]
  - Vomiting [Unknown]
  - Skin exfoliation [Unknown]
  - Malaise [Unknown]
  - Tremor [Unknown]
  - Headache [Unknown]
  - Rectal haemorrhage [Unknown]

NARRATIVE: CASE EVENT DATE: 20170830
